FAERS Safety Report 11842047 (Version 3)
Quarter: 2016Q1

REPORT INFORMATION
  Report Type: Spontaneous
  Country: IT (occurrence: IT)
  Receive Date: 20151216
  Receipt Date: 20160105
  Transmission Date: 20160526
  Serious: Yes (Death, Hospitalization, Other)
  Sender: FDA-Public Use
  Company Number: IT-SEATTLE GENETICS-2015SGN02014

PATIENT

DRUGS (1)
  1. BRENTUXIMAB VEDOTIN [Suspect]
     Active Substance: BRENTUXIMAB VEDOTIN
     Indication: HODGKIN^S DISEASE
     Dosage: 1.8 MG/KG, UNK
     Route: 065

REACTIONS (5)
  - Pneumonia aspiration [Fatal]
  - Dysphagia [Unknown]
  - Cough [Unknown]
  - Tracheal fistula [Not Recovered/Not Resolved]
  - Odynophagia [Unknown]
